FAERS Safety Report 13945537 (Version 2)
Quarter: 2017Q3

REPORT INFORMATION
  Report Type: Spontaneous
  Country: US (occurrence: US)
  Receive Date: 20170907
  Receipt Date: 20170918
  Transmission Date: 20171128
  Serious: Yes (Hospitalization)
  Sender: FDA-Public Use
  Company Number: US-PFIZER INC-2017382624

PATIENT
  Age: 44 Year
  Sex: Male
  Weight: 108 kg

DRUGS (2)
  1. INVEGA [Suspect]
     Active Substance: PALIPERIDONE
     Dosage: UNK
  2. GEODON [Suspect]
     Active Substance: ZIPRASIDONE HYDROCHLORIDE\ZIPRASIDONE MESYLATE
     Indication: BIPOLAR DISORDER
     Dosage: UNK

REACTIONS (10)
  - Stress [Unknown]
  - Weight decreased [Unknown]
  - Drug ineffective [Unknown]
  - Mania [Unknown]
  - Attention deficit/hyperactivity disorder [Unknown]
  - Wrong technique in product usage process [Unknown]
  - Agitation [Unknown]
  - Condition aggravated [Unknown]
  - Delusion [Unknown]
  - Sleep disorder [Unknown]
